FAERS Safety Report 6632630-0 (Version None)
Quarter: 2010Q1

REPORT INFORMATION
  Report Type: 
  Country: None (occurrence: None)
  Receive Date: 20100310
  Receipt Date: 20100224
  Transmission Date: 20100710
  Serious: Yes (Hospitalization)
  Sender: FDA-Public Use
  Company Number: 2010SP000601

PATIENT
  Age: 69 Year
  Sex: Female

DRUGS (7)
  1. OMNARIS [Suspect]
     Indication: MULTIPLE ALLERGIES
     Dosage: 200 UG; QD; NASAL 200 UG; 1X; NASAL
     Route: 045
     Dates: start: 20100214, end: 20100215
  2. OMNARIS [Suspect]
     Indication: MULTIPLE ALLERGIES
     Dosage: 200 UG; QD; NASAL 200 UG; 1X; NASAL
     Route: 045
     Dates: start: 20100220, end: 20100220
  3. SIMVASTATIN [Concomitant]
  4. VITAMINS [Concomitant]
  5. ALL OTHER NON-THERAPEUTIC PRODUCTS [Concomitant]
  6. VITAMIN A [Concomitant]
  7. LOVAZA [Concomitant]

REACTIONS (5)
  - DIZZINESS [None]
  - FACE INJURY [None]
  - FALL [None]
  - IMPAIRED WORK ABILITY [None]
  - LOSS OF CONSCIOUSNESS [None]
